FAERS Safety Report 5937147-4 (Version None)
Quarter: 2008Q4

REPORT INFORMATION
  Report Type: 
  Country: None (occurrence: None)
  Receive Date: 20081031
  Receipt Date: 20081024
  Transmission Date: 20090506
  Serious: Yes (Hospitalization)
  Sender: FDA-Public Use
  Company Number: JP-BRISTOL-MYERS SQUIBB COMPANY-14369300

PATIENT
  Age: 43 Year
  Sex: Male
  Weight: 79 kg

DRUGS (3)
  1. ABILIFY [Suspect]
     Indication: SCHIZOPHRENIA
     Dosage: REGIMEN#2: 24MG,ORAL REGIMEN#3: 30MG,ORAL
     Route: 048
  2. OLANZAPINE [Concomitant]
  3. VALPROATE SODIUM [Concomitant]
     Dosage: WAS DECREASED TO 200 MG/DAY ON 16-MAY

REACTIONS (1)
  - PSYCHIATRIC SYMPTOM [None]
